FAERS Safety Report 18393646 (Version 1)
Quarter: 2020Q4

REPORT INFORMATION
  Report Type: Report from Study
  Country: JP (occurrence: JP)
  Receive Date: 20201016
  Receipt Date: 20201016
  Transmission Date: 20210114
  Serious: Yes (Hospitalization)
  Sender: FDA-Public Use
  Company Number: JP-ASTRAZENECA-2020SE90257

PATIENT
  Age: 70 Year
  Sex: Male
  Weight: 94 kg

DRUGS (7)
  1. IMFINZI [Suspect]
     Active Substance: DURVALUMAB
     Indication: NON-SMALL CELL LUNG CANCER
     Dosage: 900.0MG ONCE/SINGLE ADMINISTRATION
     Route: 042
     Dates: start: 20200323, end: 20200323
  2. IMFINZI [Suspect]
     Active Substance: DURVALUMAB
     Indication: NON-SMALL CELL LUNG CANCER
     Dosage: 900.0MG ONCE/SINGLE ADMINISTRATION
     Route: 042
     Dates: start: 20200420, end: 20200420
  3. IMFINZI [Suspect]
     Active Substance: DURVALUMAB
     Indication: NON-SMALL CELL LUNG CANCER
     Dosage: 900.0MG ONCE/SINGLE ADMINISTRATION
     Route: 042
     Dates: start: 20200306, end: 20200306
  4. PICIBANIL [Concomitant]
     Active Substance: OK-432
     Route: 065
  5. LASIX [Concomitant]
     Active Substance: FUROSEMIDE
     Route: 065
  6. IMFINZI [Suspect]
     Active Substance: DURVALUMAB
     Indication: NON-SMALL CELL LUNG CANCER
     Dosage: 900.0MG ONCE/SINGLE ADMINISTRATION
     Route: 042
     Dates: start: 20200406, end: 20200406
  7. IMFINZI [Suspect]
     Active Substance: DURVALUMAB
     Indication: NON-SMALL CELL LUNG CANCER
     Dosage: 900.0MG ONCE/SINGLE ADMINISTRATION
     Route: 042
     Dates: start: 20200511, end: 20200511

REACTIONS (3)
  - Radiation pneumonitis [Recovering/Resolving]
  - Anaemia [Recovered/Resolved]
  - Pleural effusion [Recovered/Resolved]

NARRATIVE: CASE EVENT DATE: 20200511
